FAERS Safety Report 13757440 (Version 1)
Quarter: 2017Q3

REPORT INFORMATION
  Report Type: Report from Study
  Country: GB (occurrence: GB)
  Receive Date: 20170716
  Receipt Date: 20170716
  Transmission Date: 20171127
  Serious: Yes (Death, Other)
  Sender: FDA-Public Use
  Company Number: GB-EMD SERONO-E2B_80074568

PATIENT
  Age: 60 Year
  Sex: Female

DRUGS (1)
  1. REBIF [Suspect]
     Active Substance: INTERFERON BETA-1A
     Indication: PRODUCT USED FOR UNKNOWN INDICATION
     Dosage: MULTI DOSE CARTRIDGE 44
     Route: 058
     Dates: start: 20130201

REACTIONS (2)
  - Death [Fatal]
  - Brain stem stroke [Unknown]

NARRATIVE: CASE EVENT DATE: 20170602
